FAERS Safety Report 6242730-5 (Version None)
Quarter: 2009Q2

REPORT INFORMATION
  Report Type: 
  Country: None (occurrence: None)
  Receive Date: 20090624
  Receipt Date: 20090624
  Transmission Date: 20091009
  Serious: No
  Sender: FDA-Public Use
  Company Number: None

PATIENT
  Age: 81 Year
  Sex: Male
  Weight: 99.7913 kg

DRUGS (2)
  1. PRILOSEC [Suspect]
  2. ZOLOFT [Suspect]

REACTIONS (4)
  - PRURITUS [None]
  - REACTION TO DRUG EXCIPIENTS [None]
  - SCRATCH [None]
  - SKIN LACERATION [None]
